FAERS Safety Report 5719820-6 (Version None)
Quarter: 2008Q2

REPORT INFORMATION
  Report Type: 
  Country: None (occurrence: None)
  Receive Date: 20080428
  Receipt Date: 20080418
  Transmission Date: 20081010
  Serious: Yes (Hospitalization)
  Sender: FDA-Public Use
  Company Number: US-MERCK-0712USA03892

PATIENT
  Age: 60 Year
  Sex: Male
  Weight: 82 kg

DRUGS (4)
  1. TIMOPTIC [Suspect]
     Indication: GLAUCOMA
     Route: 047
     Dates: start: 19970101, end: 19981101
  2. LUMIGAN [Suspect]
     Indication: GLAUCOMA
     Route: 047
     Dates: start: 20010601, end: 20071026
  3. [THERAPY UNSPECIFIED] [Concomitant]
     Route: 065
     Dates: start: 19960801
  4. TIMOPTIC-XE [Suspect]
     Indication: GLAUCOMA
     Route: 047
     Dates: start: 19980626, end: 19981120

REACTIONS (7)
  - DYSKINESIA [None]
  - FEAR [None]
  - FEELING ABNORMAL [None]
  - MUSCLE TIGHTNESS [None]
  - NERVOUSNESS [None]
  - PARAESTHESIA [None]
  - PRURITUS [None]
